FAERS Safety Report 8722678 (Version 2)
Quarter: 2012Q4

REPORT INFORMATION
  Report Type: Spontaneous
  Country: US (occurrence: None)
  Receive Date: 20120727
  Receipt Date: 20120816
  Transmission Date: 20130627
  Serious: Yes (Hospitalization)
  Sender: FDA-Public Use
  Company Number: JPI-P-022737

PATIENT
  Age: 41 Year
  Sex: Female

DRUGS (24)
  1. XYREM [Suspect]
     Indication: CATAPLEXY
     Dosage: 4.5 GM (2.25 GM,2 IN 1 D),ORAL ; 9 GM (4.5 GM,2 IN 1 D),ORAL
     Route: 048
     Dates: start: 20070913, end: 2007
  2. XYREM [Suspect]
     Indication: CATAPLEXY
     Dosage: 4.5 GM (2.25 GM,2 IN 1 D),ORAL ; 9 GM (4.5 GM,2 IN 1 D),ORAL
     Route: 048
     Dates: start: 20071108
  3. ASENAPINE [Suspect]
     Indication: DRUG USE FOR UNKNOWN INDICATION
     Dates: start: 2012, end: 2012
  4. INSULIN (INSULIN) [Concomitant]
  5. LIDOCAINE HYDROCHLORIDE [Concomitant]
  6. VITAMINS NOS [Concomitant]
  7. CELECOXIB [Concomitant]
  8. FEXOFENADINE HCL [Concomitant]
  9. ONDANSETRON [Concomitant]
  10. PAROXETINE HYDROCHLORIDE [Concomitant]
  11. MOMETASONE FUROATE [Concomitant]
  12. CLINDAMYCIN [Concomitant]
  13. TIZANIDINE HYDROCHLORIDE [Concomitant]
  14. MONTELUKAST SODIUM [Concomitant]
  15. SPIRONOLACTONE [Concomitant]
  16. HYDROMORPHONE HYDROCHLORIDE [Concomitant]
  17. BUSPIRONE HYDROCHLORIDE [Concomitant]
  18. MOMETASONE FUROATE MONOHYDRATE [Concomitant]
  19. MOMETASONE FUROATE [Concomitant]
  20. CLONAZEPAM [Concomitant]
  21. BUPROPION HYDROCHLORIDE [Concomitant]
  22. DIHYDROERGOTAMINE MESYLATE [Concomitant]
  23. CAMPHOR MENTHOL TOPICAL [Concomitant]
  24. BENZONATATE [Concomitant]

REACTIONS (49)
  - Psychological trauma [None]
  - Irritability [None]
  - Confusional state [None]
  - Agitation [None]
  - Speech disorder [None]
  - Menstruation irregular [None]
  - Galactorrhoea [None]
  - Drug hypersensitivity [None]
  - Dysgraphia [None]
  - Poor quality sleep [None]
  - Drug administration error [None]
  - Systemic lupus erythematosus [None]
  - Psoriatic arthropathy [None]
  - Glomerular filtration rate decreased [None]
  - Sleep apnoea syndrome [None]
  - Rheumatoid arthritis [None]
  - Sinus tachycardia [None]
  - Autonomic nervous system imbalance [None]
  - Hot flush [None]
  - Labile blood pressure [None]
  - Hypokalaemia [None]
  - Muscle spasms [None]
  - Urinary hesitation [None]
  - Vitamin D deficiency [None]
  - Chest pain [None]
  - Hyperhidrosis [None]
  - Initial insomnia [None]
  - Middle insomnia [None]
  - Therapeutic response decreased [None]
  - Wrong technique in drug usage process [None]
  - Night sweats [None]
  - Migraine [None]
  - Pain in jaw [None]
  - Muscle twitching [None]
  - Dissociative identity disorder [None]
  - Arthropathy [None]
  - Post-traumatic stress disorder [None]
  - Psychiatric symptom [None]
  - Suicidal ideation [None]
  - Polycystic ovaries [None]
  - Arthralgia [None]
  - Bradycardia [None]
  - Hypotension [None]
  - Breast neoplasm [None]
  - Spinal column stenosis [None]
  - Faecal incontinence [None]
  - Enuresis [None]
  - Micturition urgency [None]
  - Autonomic neuropathy [None]
